FAERS Safety Report 18679674 (Version 1)
Quarter: 2020Q4

REPORT INFORMATION
  Report Type: Spontaneous
  Country: US (occurrence: US)
  Receive Date: 20201229
  Receipt Date: 20201229
  Transmission Date: 20210114
  Serious: Yes (Hospitalization, Other)
  Sender: FDA-Public Use
  Company Number: US-INDIVIOR US-INDV-127744-2020

PATIENT
  Age: 19 Year
  Sex: Female

DRUGS (1)
  1. BUPRENORPHINE. [Suspect]
     Active Substance: BUPRENORPHINE
     Indication: PRODUCT USED FOR UNKNOWN INDICATION
     Dosage: UNK
     Route: 042

REACTIONS (6)
  - Herpes simplex test positive [Unknown]
  - Drug-induced liver injury [Recovering/Resolving]
  - Varicella virus test positive [Recovering/Resolving]
  - Hepatitis A [Unknown]
  - Substance abuse [Unknown]
  - Intentional product use issue [Unknown]
